FAERS Safety Report 4455334-1 (Version None)
Quarter: 2004Q3

REPORT INFORMATION
  Report Type: 
  Country: None (occurrence: None)
  Receive Date: 20040825
  Receipt Date: 20040625
  Transmission Date: 20050211
  Serious: No
  Sender: FDA-Public Use
  Company Number: 207418

PATIENT
  Age: 46 Year
  Sex: Female

DRUGS (3)
  1. RAPTIVA [Suspect]
     Indication: PSORIASIS
     Dosage: 0.5 ML,SINGLE,SUBCUTANEOUS; 0.8 ML, SUBCUTANEOUS
     Route: 058
     Dates: start: 20040617, end: 20040617
  2. RAPTIVA [Suspect]
     Indication: PSORIASIS
     Dosage: 0.5 ML,SINGLE,SUBCUTANEOUS; 0.8 ML, SUBCUTANEOUS
     Route: 058
     Dates: start: 20040624
  3. HORMONE REPLACEMENT THERAPY (HORMONES NOS) [Concomitant]

REACTIONS (1)
  - DIARRHOEA [None]
